FAERS Safety Report 13764096 (Version 1)
Quarter: 2017Q3

REPORT INFORMATION
  Report Type: Spontaneous
  Country: US (occurrence: US)
  Receive Date: 20170718
  Receipt Date: 20170718
  Transmission Date: 20171127
  Serious: No
  Sender: FDA-Public Use
  Company Number: US-VANDA PHARMACEUTICALS, INC-2017TASUS001610

PATIENT
  Age: 30 Year
  Sex: Male

DRUGS (3)
  1. HETLIOZ [Suspect]
     Active Substance: TASIMELTEON
     Indication: NON-24-HOUR SLEEP-WAKE DISORDER
  2. QUDEXY XR [Concomitant]
     Active Substance: TOPIRAMATE
     Indication: SEIZURE
     Dosage: UNK
  3. HETLIOZ [Suspect]
     Active Substance: TASIMELTEON
     Indication: CIRCADIAN RHYTHM SLEEP DISORDER
     Dosage: 20 MG, EVERY 24 HOURS, QHS
     Route: 048
     Dates: start: 201704, end: 201704

REACTIONS (4)
  - Visual impairment [Recovered/Resolved]
  - Blindness transient [Recovered/Resolved]
  - Adverse drug reaction [Unknown]
  - Middle insomnia [Unknown]

NARRATIVE: CASE EVENT DATE: 201704
